FAERS Safety Report 8169676-X (Version None)
Quarter: 2012Q1

REPORT INFORMATION
  Report Type: 
  Country: None (occurrence: None)
  Receive Date: 20120228
  Receipt Date: 20120224
  Transmission Date: 20120608
  Serious: No
  Sender: FDA-Public Use
  Company Number: US-PFIZER INC-2012049983

PATIENT
  Sex: Female
  Weight: 102 kg

DRUGS (17)
  1. ADVAIR DISKUS 100/50 [Concomitant]
     Indication: ASTHMA
     Dosage: UNK
  2. ALLEGRA [Concomitant]
     Indication: HYPERSENSITIVITY
     Dosage: UNK
  3. NEXIUM [Concomitant]
     Indication: GASTROOESOPHAGEAL REFLUX DISEASE
     Dosage: UNK
  4. FLOVENT [Concomitant]
     Indication: ASTHMA
     Dosage: UNK
  5. EFFEXOR [Concomitant]
     Indication: DEPRESSION
     Dosage: UNK
  6. LISINOPRIL [Concomitant]
     Indication: HYPERTENSION
     Dosage: UNK
  7. ASTELIN [Concomitant]
     Indication: HYPERSENSITIVITY
     Dosage: UNK
  8. ZOCOR [Concomitant]
     Indication: BLOOD CHOLESTEROL INCREASED
     Dosage: UNK
  9. SONATA [Concomitant]
     Indication: INSOMNIA
     Dosage: UNK
  10. BUSPAR [Concomitant]
     Indication: ANXIETY
     Dosage: UNK
  11. AMLODIPINE [Concomitant]
     Indication: HYPERTENSION
     Dosage: UNK
  12. HYDROCHLOROTHIAZIDE [Concomitant]
     Indication: HYPERTENSION
     Dosage: UNK
  13. ZYFLO [Concomitant]
     Indication: ASTHMA
     Dosage: UNK
  14. NEURONTIN [Suspect]
     Indication: NEURALGIA
     Dosage: 300 MG, 1X/DAY
     Route: 048
     Dates: start: 20120222
  15. REGLAN [Concomitant]
     Indication: IMPAIRED GASTRIC EMPTYING
     Dosage: UNK
  16. SYNTHROID [Concomitant]
     Indication: HYPOTHYROIDISM
     Dosage: UNK
  17. FOSAMAX [Concomitant]
     Indication: OSTEOPOROSIS
     Dosage: UNK

REACTIONS (3)
  - MUSCLE DISORDER [None]
  - CONFUSIONAL STATE [None]
  - NAUSEA [None]
